FAERS Safety Report 9513821 (Version 1)
Quarter: 2013Q1

REPORT INFORMATION
  Report Type: Spontaneous
  Country: US (occurrence: None)
  Receive Date: 20130305
  Receipt Date: 20130305
  Transmission Date: 20140127
  Serious: Yes (Hospitalization, Other)
  Sender: FDA-Public Use
  Company Number: 163-21880-12102612

PATIENT
  Age: 80 Year
  Sex: Male
  Weight: 81.65 kg

DRUGS (6)
  1. REVLIMID (LENALIDOMIDE) (15 MILLIGRAM, CAPSULES) [Suspect]
     Indication: PLASMA CELL MYELOMA
     Dosage: 15 MG, 1 IN 1 D, PO
     Route: 048
     Dates: start: 201109
  2. VITAMINS (VITAMINS) (UNKNOWN) [Concomitant]
  3. LISINOPRIL (LISINOPRIL) [Concomitant]
  4. CALCIUM (CALCIUM) [Concomitant]
  5. POTASSIUM (POTASSIUM) [Concomitant]
  6. NEUPOGEN (FILGRASTIM) (UNKNOWN) [Concomitant]

REACTIONS (2)
  - Pneumonia [None]
  - White blood cell count decreased [None]
